FAERS Safety Report 8142813-9 (Version None)
Quarter: 2012Q1

REPORT INFORMATION
  Report Type: 
  Country: None (occurrence: None)
  Receive Date: 20120216
  Receipt Date: 20120207
  Transmission Date: 20120608
  Serious: Yes (Hospitalization)
  Sender: FDA-Public Use
  Company Number: DE-ELI_LILLY_AND_COMPANY-DE201201001194

PATIENT
  Age: 51 Year
  Sex: Male

DRUGS (5)
  1. METFORMIN HCL [Concomitant]
     Dosage: 1000 MG, UNKNOWN
  2. BYDUREON [Suspect]
     Indication: TYPE 2 DIABETES MELLITUS
     Dosage: 2 MG, UNKNOWN
     Dates: start: 20111117, end: 20111215
  3. BISOPROLOL FUMARATE [Concomitant]
     Dosage: UNK
  4. ENALAPRIL [Concomitant]
  5. LIPROLOG [Concomitant]
     Dosage: UNK, PRN

REACTIONS (4)
  - OFF LABEL USE [None]
  - ABDOMINAL PAIN UPPER [None]
  - AMYLASE INCREASED [None]
  - LIPASE INCREASED [None]
